FAERS Safety Report 7234441-4 (Version None)
Quarter: 2011Q1

REPORT INFORMATION
  Report Type: 
  Country: None (occurrence: None)
  Receive Date: 20110119
  Receipt Date: 20110107
  Transmission Date: 20110831
  Serious: Yes (Death)
  Sender: FDA-Public Use
  Company Number: EC-GENENTECH-312277

PATIENT
  Sex: Female

DRUGS (3)
  1. MABTHERA [Suspect]
     Indication: LUPUS NEPHRITIS
     Dosage: 500 MG, SINGLE
     Route: 042
     Dates: start: 20101203, end: 20101201
  2. PREDNISOLONE [Concomitant]
     Indication: NEPHRITIS
     Dosage: UNK
     Route: 048
  3. PREDNISOLONE [Concomitant]
     Dosage: UNK
     Route: 048
     Dates: start: 20101101

REACTIONS (1)
  - RENAL FAILURE [None]
